FAERS Safety Report 26076477 (Version 1)
Quarter: 2025Q4

REPORT INFORMATION
  Report Type: Spontaneous
  Country: EU (occurrence: EU)
  Receive Date: 20251121
  Receipt Date: 20251121
  Transmission Date: 20260118
  Serious: Yes (Death, Hospitalization)
  Sender: TAKEDA
  Company Number: EU-TAKEDA-2025TUS104857

PATIENT

DRUGS (2)
  1. FRUZAQLA [Suspect]
     Active Substance: FRUQUINTINIB
     Indication: Product used for unknown indication
     Dosage: 5 MILLIGRAM
  2. FRUZAQLA [Suspect]
     Active Substance: FRUQUINTINIB
     Dosage: 3 MILLIGRAM

REACTIONS (2)
  - General physical health deterioration [Unknown]
  - Illness [Fatal]
